FAERS Safety Report 9728531 (Version 1)
Quarter: 2013Q4

REPORT INFORMATION
  Report Type: Spontaneous
  Country: CH (occurrence: None)
  Receive Date: 20131202
  Receipt Date: 20131202
  Transmission Date: 20140711
  Serious: Yes (Other)
  Sender: FDA-Public Use
  Company Number: 20130674

PATIENT
  Age: 23 Year
  Sex: Female

DRUGS (3)
  1. FERINJECT [Suspect]
     Indication: IRON DEFICIENCY ANAEMIA
     Dosage: 500 MG, 1 IN 1 TOTAL
  2. LIQUEMIN (HEPARIN) , UNKNOWN DOSE, 1 IN 1 DAILY DOSE, 1 IN 1 DAILY INTRAVENOUS [Concomitant]
  3. RINGER LACTAT (SODIUM SODIUM LACTATE, MAGNESIUM, POTASSIUM), UNKNOWN DOSE, 1 IN 1 DAILY [Concomitant]

REACTIONS (2)
  - Urticaria [None]
  - Blister [None]
